FAERS Safety Report 4467980-X (Version None)
Quarter: 2004Q4

REPORT INFORMATION
  Report Type: 
  Country: None (occurrence: None)
  Receive Date: 20041001
  Receipt Date: 20040923
  Transmission Date: 20050328
  Serious: Yes (Hospitalization)
  Sender: FDA-Public Use
  Company Number: 2004PK01582

PATIENT
  Age: 43 Year
  Sex: Male
  Weight: 91 kg

DRUGS (10)
  1. TENORMIN [Suspect]
     Dosage: 50 MG DAILY PO
     Route: 048
  2. AMOXICILLIN [Suspect]
     Dosage: 1 G BID PO
     Route: 048
     Dates: start: 20030701
  3. KLACID /IRE/ [Suspect]
     Dosage: 500 MG BID PO
     Route: 048
     Dates: start: 20030701
  4. ALLOPURINOL [Suspect]
     Dosage: 100 MG DAILY PO
     Route: 048
     Dates: end: 20040607
  5. SANDIMMUNE [Suspect]
     Dosage: 150 MG DAILY PO
     Route: 048
  6. FLUOXETINE [Suspect]
     Dosage: 20 MG DAILY PO
     Route: 048
  7. RENITEN /00574902/ [Suspect]
     Dosage: 20 MG DAILY PO
     Route: 048
  8. NORVASC [Concomitant]
  9. MADOPAR [Concomitant]
  10. PREDNISONE TAB [Concomitant]

REACTIONS (2)
  - CHOLELITHIASIS [None]
  - HEPATITIS CHOLESTATIC [None]
